FAERS Safety Report 9174346 (Version 1)
Quarter: 2013Q1

REPORT INFORMATION
  Report Type: Spontaneous
  Country: FR (occurrence: FR)
  Receive Date: 20130320
  Receipt Date: 20130320
  Transmission Date: 20140127
  Serious: Yes (Death)
  Sender: FDA-Public Use
  Company Number: FR-SANOFI-AVENTIS-2013SA024858

PATIENT
  Sex: Male
  Weight: 1.37 kg

DRUGS (9)
  1. PLAQUENIL [Suspect]
     Indication: PRODUCT USED FOR UNKNOWN INDICATION
     Route: 015
     Dates: start: 20111101, end: 20120504
  2. CORTANCYL [Suspect]
     Indication: PRODUCT USED FOR UNKNOWN INDICATION
     Route: 015
     Dates: start: 20111101, end: 20120504
  3. LOVENOX [Suspect]
     Indication: PRODUCT USED FOR UNKNOWN INDICATION
     Route: 015
     Dates: start: 20111101, end: 20120504
  4. ASPEGIC NOURRISSONS [Suspect]
     Indication: PRODUCT USED FOR UNKNOWN INDICATION
     Route: 015
     Dates: start: 20111101, end: 20120504
  5. NOVATREX [Suspect]
     Indication: PRODUCT USED FOR UNKNOWN INDICATION
     Route: 015
     Dates: start: 20111101, end: 20120504
  6. IMUREL [Suspect]
     Indication: PRODUCT USED FOR UNKNOWN INDICATION
     Route: 015
     Dates: start: 20111230, end: 20120504
  7. FOLIC ACID [Concomitant]
     Route: 015
     Dates: start: 201112, end: 20120405
  8. IRON [Concomitant]
     Indication: IRON DEFICIENCY ANAEMIA
     Route: 015
     Dates: start: 20111101, end: 20120504
  9. AMOXICILLIN [Concomitant]
     Indication: ESCHERICHIA URINARY TRACT INFECTION
     Route: 015
     Dates: start: 20120502, end: 20120505

REACTIONS (2)
  - Periventricular leukomalacia [Fatal]
  - Foetal exposure during pregnancy [Unknown]
